FAERS Safety Report 21310583 (Version 1)
Quarter: 2022Q3

REPORT INFORMATION
  Report Type: Report from Study
  Country: US (occurrence: US)
  Receive Date: 20220909
  Receipt Date: 20220909
  Transmission Date: 20221026
  Serious: Yes (Hospitalization, Other)
  Sender: FDA-Public Use
  Company Number: US-EXELIXIS-XL18422055637

PATIENT

DRUGS (3)
  1. CABOZANTINIB [Suspect]
     Active Substance: CABOZANTINIB
     Indication: Chromophobe renal cell carcinoma
     Dosage: UNK
     Dates: start: 20220822, end: 20220826
  2. NIVOLUMAB [Suspect]
     Active Substance: NIVOLUMAB
     Indication: Chromophobe renal cell carcinoma
     Dosage: 3 MG/KG, Q3WEEKS
     Route: 042
     Dates: start: 20220822
  3. IPILIMUMAB [Suspect]
     Active Substance: IPILIMUMAB
     Indication: Chromophobe renal cell carcinoma
     Dosage: 1 MG/KG, Q3WEEKS
     Route: 042
     Dates: start: 20220822

REACTIONS (2)
  - Pyrexia [Unknown]
  - Acute kidney injury [Unknown]

NARRATIVE: CASE EVENT DATE: 20220826
